FAERS Safety Report 6524728-2 (Version None)
Quarter: 2009Q4

REPORT INFORMATION
  Report Type: 
  Country: None (occurrence: None)
  Receive Date: 20091214
  Receipt Date: 20091002
  Transmission Date: 20100525
  Serious: Yes (Hospitalization)
  Sender: FDA-Public Use
  Company Number: 660534

PATIENT
  Age: 26 Year
  Sex: Male

DRUGS (6)
  1. PEGASYS [Suspect]
     Indication: HEPATITIS C
     Dosage: 180 UG 1 PER 1 WEEK SUBCUTANEOUS
     Route: 058
     Dates: start: 20090303, end: 20090930
  2. RIBAVIRIN [Suspect]
     Indication: HEPATITIS C
     Dates: start: 20090303, end: 20090930
  3. ZOLOFT [Concomitant]
  4. MARINOL (ALGAE/ALLOPURINOL/CALCIUM PHOSPHATE MONOBASIC/*DRONABINOL/*IO [Concomitant]
  5. MVI WITH FE (IRON NOS/MULTIVITAMIN NOS) [Concomitant]
  6. MARINOL(ALGAE/ALLOPURINOL/CALCIUM PHOSPHATE [Concomitant]

REACTIONS (1)
  - INFECTED CYST [None]
